FAERS Safety Report 14251356 (Version 3)
Quarter: 2017Q4

REPORT INFORMATION
  Report Type: Spontaneous
  Country: DE (occurrence: DE)
  Receive Date: 20171205
  Receipt Date: 20171222
  Transmission Date: 20180321
  Serious: Yes (Hospitalization)
  Sender: FDA-Public Use
  Company Number: DE-TEVA-223771ISR

PATIENT
  Age: 68 Year
  Sex: Female

DRUGS (1)
  1. DICLOFENAC [Suspect]
     Active Substance: DICLOFENAC
     Route: 048
     Dates: start: 20091010, end: 20091201

REACTIONS (4)
  - Jaundice [Not Recovered/Not Resolved]
  - Hepatitis [Not Recovered/Not Resolved]
  - Hepatic enzyme increased [Recovering/Resolving]
  - Blood bilirubin increased [Recovering/Resolving]

NARRATIVE: CASE EVENT DATE: 20100111
